FAERS Safety Report 24604957 (Version 1)
Quarter: 2024Q4

REPORT INFORMATION
  Report Type: Spontaneous
  Country: HU (occurrence: HU)
  Receive Date: 20241111
  Receipt Date: 20241111
  Transmission Date: 20250114
  Serious: Yes (Other)
  Sender: NOVARTIS
  Company Number: HU-002147023-NVSC2024HU216027

PATIENT
  Age: 78 Year
  Sex: Female

DRUGS (4)
  1. EVEROLIMUS [Suspect]
     Active Substance: EVEROLIMUS
     Indication: Neuroendocrine tumour
     Dosage: 10 MG, QD (1X DAILY)
     Route: 065
     Dates: start: 20211217, end: 20220131
  2. CAPECITABINE [Concomitant]
     Active Substance: CAPECITABINE
     Indication: Product used for unknown indication
     Dosage: 500 MG (2X2 TABLETS)
     Route: 065
  3. CAPECITABINE [Concomitant]
     Active Substance: CAPECITABINE
     Dosage: 150 MG  (2X2 TABLETS)
     Route: 065
  4. TEMOZOLOMIDE [Concomitant]
     Active Substance: TEMOZOLOMIDE
     Indication: Product used for unknown indication
     Dosage: 180. MG
     Route: 065

REACTIONS (8)
  - Metastases to liver [Unknown]
  - Carcinoid tumour of the pancreas [Unknown]
  - Weight decreased [Unknown]
  - Hypertension [Unknown]
  - Diarrhoea [Unknown]
  - Oedema [Unknown]
  - Mouth ulceration [Unknown]
  - Glomerular filtration rate decreased [Unknown]

NARRATIVE: CASE EVENT DATE: 20211217
